FAERS Safety Report 5803666-4 (Version None)
Quarter: 2008Q3

REPORT INFORMATION
  Report Type: 
  Country: None (occurrence: None)
  Receive Date: 20080708
  Receipt Date: 20070629
  Transmission Date: 20090109
  Serious: No
  Sender: FDA-Public Use
  Company Number: US-AMGEN-KDL226425

PATIENT
  Sex: Female

DRUGS (2)
  1. KINERET [Suspect]
     Indication: RHEUMATOID ARTHRITIS
     Route: 058
     Dates: start: 20030114
  2. METHOTREXATE [Concomitant]
     Dates: start: 20020101

REACTIONS (3)
  - CYSTITIS [None]
  - PHARYNGITIS [None]
  - RHEUMATOID ARTHRITIS [None]
